FAERS Safety Report 16086327 (Version 3)
Quarter: 2019Q1

REPORT INFORMATION
  Report Type: Report from Study
  Country: SK (occurrence: SK)
  Receive Date: 20190318
  Receipt Date: 20190327
  Transmission Date: 20190418
  Serious: No
  Sender: FDA-Public Use
  Company Number: SK-SA-2019SA053054

PATIENT
  Age: 41 Year
  Sex: Female

DRUGS (1)
  1. ALEMTUZUMAB [Suspect]
     Active Substance: ALEMTUZUMAB
     Indication: RELAPSING-REMITTING MULTIPLE SCLEROSIS
     Dosage: 12 MG, QD
     Route: 041
     Dates: start: 20190211, end: 20190215

REACTIONS (6)
  - Pyrexia [Recovered/Resolved]
  - Oral herpes [Recovered/Resolved]
  - C-reactive protein increased [Recovering/Resolving]
  - Tension headache [Recovered/Resolved]
  - Leukopenia [Recovering/Resolving]
  - Bacteriuria [Recovering/Resolving]

NARRATIVE: CASE EVENT DATE: 20190211
